FAERS Safety Report 4354439-3 (Version None)
Quarter: 2004Q2

REPORT INFORMATION
  Report Type: 
  Country: None (occurrence: None)
  Receive Date: 20040503
  Receipt Date: 20040204
  Transmission Date: 20050107
  Serious: Yes (Other)
  Sender: FDA-Public Use
  Company Number: PHEH2004US01568

PATIENT
  Age: 70 Year
  Sex: Female

DRUGS (7)
  1. LOTREL [Suspect]
     Indication: HYPERTENSION
     Dosage: 5 MG AMLOD/20MG BENAZ QD
     Dates: start: 20040109
  2. TOPROL-XL [Concomitant]
  3. SYNTHROID [Concomitant]
  4. NEURONTIN [Concomitant]
  5. FOSAMAX [Concomitant]
  6. ZOLOFT [Concomitant]
  7. CELEBREX [Concomitant]

REACTIONS (4)
  - BLOOD PRESSURE FLUCTUATION [None]
  - BLOOD PRESSURE INCREASED [None]
  - INCONTINENCE [None]
  - MICTURITION URGENCY [None]
